FAERS Safety Report 8610951-X (Version None)
Quarter: 2012Q3

REPORT INFORMATION
  Report Type: 
  Country: None (occurrence: None)
  Receive Date: 20120420
  Receipt Date: 20111206
  Transmission Date: 20120928
  Serious: Yes (Hospitalization)
  Sender: FDA-Public Use
  Company Number: WAES 1112USA00905

PATIENT
  Age: 73 Year
  Sex: Female

DRUGS (2)
  1. SINGULAIR [Suspect]
     Indication: ASTHMA
     Dosage: 5 MG/DAILY/PO
     Route: 048
     Dates: start: 20111101, end: 20111101
  2. PROAIR (ALBUTEROL SULFATE) [Concomitant]

REACTIONS (3)
  - PRURITUS [None]
  - ANAPHYLACTIC REACTION [None]
  - URTICARIA [None]
